FAERS Safety Report 14742434 (Version 2)
Quarter: 2019Q2

REPORT INFORMATION
  Report Type: Spontaneous
  Country: US (occurrence: US)
  Receive Date: 20180410
  Receipt Date: 20190423
  Transmission Date: 20190711
  Serious: Yes (Other)
  Sender: FDA-Public Use
  Company Number: US-TAKEDA-2018TUS009265

PATIENT

DRUGS (41)
  1. OMEPRAZOLE. [Suspect]
     Active Substance: OMEPRAZOLE
     Indication: PRODUCT USED FOR UNKNOWN INDICATION
     Dosage: UNK
     Route: 048
     Dates: start: 200701, end: 201701
  2. TORSEMIDE. [Concomitant]
     Active Substance: TORSEMIDE
     Dosage: UNK
  3. QUINAPRIL. [Concomitant]
     Active Substance: QUINAPRIL
  4. NAPROXEN. [Concomitant]
     Active Substance: NAPROXEN
  5. CIPROFLOXACIN. [Concomitant]
     Active Substance: CIPROFLOXACIN
  6. LEVOFLOXACIN. [Concomitant]
     Active Substance: LEVOFLOXACIN
  7. DOXYCYCLINE. [Concomitant]
     Active Substance: DOXYCYCLINE
  8. ASPIRIN                            /00002701/ [Concomitant]
     Active Substance: ASPIRIN
  9. VITAMIN B12 [Concomitant]
     Active Substance: CYANOCOBALAMIN
  10. PREVACID [Suspect]
     Active Substance: LANSOPRAZOLE
     Dosage: UNK
     Route: 048
     Dates: start: 20100923, end: 20101215
  11. NEXIUM 24HR [Suspect]
     Active Substance: ESOMEPRAZOLE MAGNESIUM
     Indication: PRODUCT USED FOR UNKNOWN INDICATION
     Dosage: UNK
     Route: 048
     Dates: start: 200701, end: 201701
  12. COREG [Concomitant]
     Active Substance: CARVEDILOL
     Dosage: UNK
  13. ALKA SELTZER                       /00002701/ [Concomitant]
     Active Substance: ASPIRIN
  14. TORSEMIDE. [Concomitant]
     Active Substance: TORSEMIDE
  15. AZITHROMYCIN ANHYDROUS. [Concomitant]
     Active Substance: AZITHROMYCIN ANHYDROUS
  16. IBUPROFEN. [Concomitant]
     Active Substance: IBUPROFEN
  17. PREVACID [Suspect]
     Active Substance: LANSOPRAZOLE
     Indication: PRODUCT USED FOR UNKNOWN INDICATION
     Dosage: UNK
     Route: 048
     Dates: start: 200701, end: 201701
  18. PRILOSEC [Suspect]
     Active Substance: OMEPRAZOLE MAGNESIUM
     Indication: PRODUCT USED FOR UNKNOWN INDICATION
     Dosage: UNK
     Route: 048
     Dates: start: 200701, end: 201701
  19. ASPIRIN. [Concomitant]
     Active Substance: ASPIRIN
     Dosage: UNK
  20. TRAMADOL. [Concomitant]
     Active Substance: TRAMADOL
  21. TRIAMTERENE. [Concomitant]
     Active Substance: TRIAMTERENE
  22. VITAMIN D                          /00107901/ [Concomitant]
     Active Substance: ERGOCALCIFEROL
  23. NYSTATIN. [Concomitant]
     Active Substance: NYSTATIN
     Dosage: UNK
  24. LIPITOR [Concomitant]
     Active Substance: ATORVASTATIN CALCIUM
  25. TUMS                               /00193601/ [Concomitant]
     Active Substance: CALCIUM CARBONATE\MAGNESIUM CARBONATE\MAGNESIUM TRISILICATE
  26. PEPTO-BISMOL [Concomitant]
     Active Substance: BISMUTH SUBSALICYLATE
  27. DEXILANT [Suspect]
     Active Substance: DEXLANSOPRAZOLE
     Indication: PRODUCT USED FOR UNKNOWN INDICATION
     Dosage: UNK
     Route: 048
     Dates: start: 200701, end: 201701
  28. NEXIUM [Suspect]
     Active Substance: ESOMEPRAZOLE MAGNESIUM
     Indication: PRODUCT USED FOR UNKNOWN INDICATION
     Dosage: UNK
     Route: 048
     Dates: start: 200701, end: 201701
  29. PREVACID 24 HR [Suspect]
     Active Substance: LANSOPRAZOLE
     Indication: PRODUCT USED FOR UNKNOWN INDICATION
     Dosage: UNK
     Route: 048
     Dates: start: 200701, end: 201701
  30. GABAPENTIN. [Concomitant]
     Active Substance: GABAPENTIN
     Dosage: UNK
  31. PROTONIX [Suspect]
     Active Substance: PANTOPRAZOLE SODIUM
     Indication: PRODUCT USED FOR UNKNOWN INDICATION
     Dosage: UNK
     Route: 048
     Dates: start: 200701, end: 201701
  32. PENICILLIN                         /00001802/ [Concomitant]
     Active Substance: PENICILLIN V POTASSIUM
  33. TRIMETHOPRIM. [Concomitant]
     Active Substance: TRIMETHOPRIM
  34. CEPHALEXIN                         /00145501/ [Concomitant]
     Active Substance: CEPHALEXIN
  35. SIMVASTATIN. [Concomitant]
     Active Substance: SIMVASTATIN
  36. ATORVASTATIN [Concomitant]
     Active Substance: ATORVASTATIN
  37. ATROPINE SULFATE. [Concomitant]
     Active Substance: ATROPINE SULFATE
     Dosage: UNK
  38. LIPITOR [Concomitant]
     Active Substance: ATORVASTATIN CALCIUM
     Dosage: UNK
  39. LISINOPRIL. [Concomitant]
     Active Substance: LISINOPRIL
  40. FUROSEMIDE. [Concomitant]
     Active Substance: FUROSEMIDE
  41. FAMOTIDINE. [Concomitant]
     Active Substance: FAMOTIDINE

REACTIONS (2)
  - Chronic kidney disease [Not Recovered/Not Resolved]
  - Acute kidney injury [Not Recovered/Not Resolved]
